FAERS Safety Report 6801140-X (Version None)
Quarter: 2010Q2

REPORT INFORMATION
  Report Type: 
  Country: None (occurrence: None)
  Receive Date: 20100629
  Receipt Date: 20100618
  Transmission Date: 20101027
  Serious: Yes (Other)
  Sender: FDA-Public Use
  Company Number: US-PFIZER INC-2003041236

PATIENT
  Sex: Male
  Weight: 86 kg

DRUGS (9)
  1. VIAGRA [Suspect]
     Indication: ERECTILE DYSFUNCTION
     Dosage: 50 MG, AS NEEDED
     Route: 048
     Dates: start: 20020101
  2. VIAGRA [Suspect]
     Dosage: 100 MG, AS NEEDED
     Route: 048
  3. VIAGRA [Suspect]
     Dosage: 25 MG, AS NEEDED
  4. VIAGRA [Suspect]
     Dosage: 75 MG, AS NEEDED
  5. GABAPENTIN [Suspect]
     Indication: PAIN
     Dosage: UNK
     Route: 061
  6. STRATTERA [Suspect]
     Indication: ATTENTION DEFICIT/HYPERACTIVITY DISORDER
     Dosage: UNK
     Route: 065
     Dates: start: 20030101, end: 20030101
  7. PROGESTERONE W/ESTROGENS/ [Suspect]
     Dosage: UNK
     Route: 065
  8. ROFECOXIB [Concomitant]
     Dosage: UNK
     Route: 065
  9. ESOMEPRAZOLE [Concomitant]
     Dosage: UNK
     Route: 065

REACTIONS (6)
  - ANORGASMIA [None]
  - BACK INJURY [None]
  - BLOOD TESTOSTERONE DECREASED [None]
  - DISTURBANCE IN SEXUAL AROUSAL [None]
  - ERECTILE DYSFUNCTION [None]
  - SENSORY LOSS [None]
